FAERS Safety Report 6719510-7 (Version None)
Quarter: 2010Q2

REPORT INFORMATION
  Report Type: 
  Country: None (occurrence: None)
  Receive Date: 20100511
  Receipt Date: 20100423
  Transmission Date: 20101027
  Serious: Yes (Hospitalization)
  Sender: FDA-Public Use
  Company Number: US-ROCHE-701392

PATIENT
  Age: 73 Year
  Sex: Female

DRUGS (2)
  1. VESANOID [Suspect]
     Indication: ACUTE PROMYELOCYTIC LEUKAEMIA
     Route: 048
  2. VESANOID [Suspect]
     Dosage: ROUTE: SUBLINGUAL
     Route: 048
     Dates: start: 20100422, end: 20100422

REACTIONS (2)
  - ACUTE PROMYELOCYTIC LEUKAEMIA [None]
  - ENDOTRACHEAL INTUBATION [None]
